FAERS Safety Report 8261838-6 (Version None)
Quarter: 2012Q2

REPORT INFORMATION
  Report Type: 
  Country: None (occurrence: None)
  Receive Date: 20120405
  Receipt Date: 20120402
  Transmission Date: 20120825
  Serious: Yes (Other)
  Sender: FDA-Public Use
  Company Number: US-BAYER-201030286NA

PATIENT
  Age: 62 Year
  Sex: Male
  Weight: 124 kg

DRUGS (19)
  1. MAGNEVIST [Suspect]
     Indication: NUCLEAR MAGNETIC RESONANCE IMAGING BRAIN
     Dates: start: 20060117, end: 20060117
  2. ARANESP [Concomitant]
     Route: 042
     Dates: start: 20070521
  3. UNKNOWN GBCA [Suspect]
     Dosage: UNK
     Dates: start: 20040101, end: 20040615
  4. FOLIC ACID [Concomitant]
  5. OMNISCAN [Suspect]
     Indication: ANGIOGRAM
     Dosage: 40 ML, THEN 50 ML
     Dates: start: 20041109, end: 20041109
  6. SIMVASTATIN [Concomitant]
  7. CALCIUM CARBONATE [Concomitant]
     Dosage: 500 MG (DAILY DOSE), ,
  8. EPOGEN [Concomitant]
     Dosage: 1000/ 3 X WEEK DURING DIALYSIS
     Route: 042
  9. UNKNOWN GBCA [Suspect]
     Indication: CATHETERISATION CARDIAC
     Dates: start: 20021104, end: 20021104
  10. OMNISCAN [Suspect]
     Indication: NUCLEAR MAGNETIC RESONANCE IMAGING
  11. LYRICA [Concomitant]
     Dosage: 25 MG, 1-2 TABLETS DAILY
  12. GABAPENTIN [Concomitant]
  13. DOXAZOSIN MESYLATE [Concomitant]
  14. HYDRALAZINE HCL [Concomitant]
  15. MAGNESIUM [Concomitant]
  16. FUROSEMIDE [Concomitant]
  17. ATENOLOL [Concomitant]
  18. DARVOCET [Concomitant]
     Dosage: 1-2 TABLETS PRN
  19. RENAGEL [Concomitant]
     Dosage: 1 DAILY

REACTIONS (26)
  - OEDEMA PERIPHERAL [None]
  - SKIN DISORDER [None]
  - HYPOAESTHESIA [None]
  - STRESS [None]
  - BURNING SENSATION [None]
  - RASH [None]
  - SKIN FIBROSIS [None]
  - POST THROMBOTIC SYNDROME [None]
  - EMOTIONAL DISTRESS [None]
  - DRY SKIN [None]
  - RASH PRURITIC [None]
  - HYPERKERATOSIS [None]
  - SKIN HYPERTROPHY [None]
  - EXFOLIATIVE RASH [None]
  - SKIN ATROPHY [None]
  - ERYTHEMA [None]
  - SKIN INDURATION [None]
  - PAIN IN EXTREMITY [None]
  - SKIN LESION [None]
  - SKIN PLAQUE [None]
  - PAIN [None]
  - ANXIETY [None]
  - RENAL FAILURE [None]
  - HAEMODIALYSIS [None]
  - TENDONITIS [None]
  - NEPHROGENIC SYSTEMIC FIBROSIS [None]
